FAERS Safety Report 7540744-6 (Version None)
Quarter: 2011Q2

REPORT INFORMATION
  Report Type: 
  Country: None (occurrence: None)
  Receive Date: 20110610
  Receipt Date: 20110601
  Transmission Date: 20111010
  Serious: Yes (Hospitalization)
  Sender: FDA-Public Use
  Company Number: US-ROCHE-780053

PATIENT
  Sex: Male
  Weight: 63 kg

DRUGS (4)
  1. LEUCOVORIN CALCIUM [Suspect]
     Dosage: UNK
     Route: 065
     Dates: start: 20101228
  2. FLUOROURACIL [Suspect]
     Dosage: UNK
     Route: 065
     Dates: start: 20101228
  3. BEVACIZUMAB [Suspect]
     Dosage: 5 MG/KG, Q2W
     Route: 042
     Dates: start: 20101228
  4. OXALIPLATIN [Suspect]
     Dosage: UNK
     Route: 065
     Dates: start: 20101228

REACTIONS (1)
  - DEEP VEIN THROMBOSIS [None]
